FAERS Safety Report 6107618-9 (Version None)
Quarter: 2009Q1

REPORT INFORMATION
  Report Type: 
  Country: None (occurrence: None)
  Receive Date: 20090302
  Receipt Date: 20080806
  Transmission Date: 20090719
  Serious: Yes (Other)
  Sender: FDA-Public Use
  Company Number: WAES 0808USA02421

PATIENT
  Age: 63 Year
  Sex: Male

DRUGS (1)
  1. PRINIVIL [Suspect]
     Dosage: DAILY/PO
     Route: 048

REACTIONS (1)
  - RENAL FAILURE ACUTE [None]
